FAERS Safety Report 19210098 (Version 1)
Quarter: 2021Q2

REPORT INFORMATION
  Report Type: Report from Study
  Country: US (occurrence: US)
  Receive Date: 20210504
  Receipt Date: 20210504
  Transmission Date: 20210717
  Serious: Yes (Other)
  Sender: FDA-Public Use
  Company Number: US-TEVA-2021-US-1907191

PATIENT
  Age: 58 Year
  Sex: Male

DRUGS (3)
  1. CLOPIDOGREL [Suspect]
     Active Substance: CLOPIDOGREL BISULFATE
     Indication: DRUG THERAPY
     Route: 065
  2. ASPIRIN. [Suspect]
     Active Substance: ASPIRIN
     Indication: DRUG THERAPY
     Dosage: 81MG
     Route: 065
  3. APIXABAN [Suspect]
     Active Substance: APIXABAN
     Indication: DRUG THERAPY
     Route: 048

REACTIONS (1)
  - Lower gastrointestinal haemorrhage [Unknown]
